FAERS Safety Report 23740155 (Version 1)
Quarter: 2024Q2

REPORT INFORMATION
  Report Type: Spontaneous
  Country: BE (occurrence: BE)
  Receive Date: 20240414
  Receipt Date: 20240414
  Transmission Date: 20240716
  Serious: Yes (Hospitalization)
  Sender: FDA-Public Use
  Company Number: BE-BoehringerIngelheim-2024-BI-020644

PATIENT
  Age: 73 Year
  Sex: Female
  Weight: 89.0 kg

DRUGS (3)
  1. PRADAXA [Suspect]
     Active Substance: DABIGATRAN ETEXILATE MESYLATE
     Indication: Product used for unknown indication
  2. SEMAGLUTIDE [Suspect]
     Active Substance: SEMAGLUTIDE
     Indication: Type 2 diabetes mellitus
     Dosage: BLINDED, INFORMATION WITHHELD
     Route: 048
     Dates: start: 20200208, end: 20200813
  3. SEMAGLUTIDE [Suspect]
     Active Substance: SEMAGLUTIDE
     Dosage: BLINDED, INFORMATION WITHHELD
     Route: 048
     Dates: start: 20210504

REACTIONS (2)
  - Ischaemic stroke [Recovered/Resolved]
  - Tenotomy [Unknown]

NARRATIVE: CASE EVENT DATE: 20230313
